FAERS Safety Report 9259523 (Version 1)
Quarter: 2013Q2

REPORT INFORMATION
  Report Type: Spontaneous
  Country: US (occurrence: US)
  Receive Date: 20130429
  Receipt Date: 20130429
  Transmission Date: 20140414
  Serious: Yes (Hospitalization)
  Sender: FDA-Public Use
  Company Number: US-ROCHE-1219149

PATIENT
  Sex: Female
  Weight: 64.92 kg

DRUGS (1)
  1. XELODA [Suspect]
     Indication: COLON CANCER STAGE III
     Dosage: 4 TABLETS OF 500 MG IN MORNING AND 3 TABLETS OF 500 MG IN EVENING
     Route: 048

REACTIONS (2)
  - Lip swelling [Recovered/Resolved]
  - Colitis [Unknown]
